FAERS Safety Report 10862219 (Version 3)
Quarter: 2015Q1

REPORT INFORMATION
  Report Type: Spontaneous
  Country: AU (occurrence: AU)
  Receive Date: 20150224
  Receipt Date: 20150303
  Transmission Date: 20150721
  Serious: Yes (Hospitalization, Other)
  Sender: FDA-Public Use
  Company Number: AU-ABBVIE-11P-008-0802714-00

PATIENT
  Age: 38 Year
  Sex: Female

DRUGS (5)
  1. COLOXYL WITH SENNA [Concomitant]
     Active Substance: DOCUSATE\SENNOSIDES
     Indication: PRODUCT USED FOR UNKNOWN INDICATION
     Route: 048
  2. DUODOPA [Suspect]
     Active Substance: CARBIDOPA\LEVODOPA
     Indication: PARKINSON^S DISEASE
     Dosage: VARIABLE, CONTINUOUS
     Route: 050
     Dates: start: 20110330
  3. DOMPERIDONE [Concomitant]
     Active Substance: DOMPERIDONE
     Indication: PRODUCT USED FOR UNKNOWN INDICATION
     Route: 048
  4. SERTRALINE [Concomitant]
     Active Substance: SERTRALINE HYDROCHLORIDE
     Indication: PRODUCT USED FOR UNKNOWN INDICATION
     Route: 048
  5. QUETIAPINE [Concomitant]
     Active Substance: QUETIAPINE
     Indication: PRODUCT USED FOR UNKNOWN INDICATION
     Route: 048

REACTIONS (17)
  - Device dislocation [Unknown]
  - General physical health deterioration [Unknown]
  - Abdominal pain [Recovered/Resolved]
  - Abdominal distension [Recovered/Resolved]
  - Malaise [Unknown]
  - General physical health deterioration [Unknown]
  - Laparotomy [Recovered/Resolved]
  - Abdominal wall disorder [Recovered/Resolved]
  - Balance disorder [Not Recovered/Not Resolved]
  - Localised intraabdominal fluid collection [Unknown]
  - Pneumoperitoneum [Recovered/Resolved]
  - Device leakage [Recovered/Resolved]
  - Gait disturbance [Not Recovered/Not Resolved]
  - Peritonitis [Recovered/Resolved]
  - Nausea [Recovering/Resolving]
  - Hyperhidrosis [Unknown]
  - Abdominal tenderness [Unknown]

NARRATIVE: CASE EVENT DATE: 20110412
